FAERS Safety Report 9969193 (Version 3)
Quarter: 2014Q2

REPORT INFORMATION
  Report Type: Spontaneous
  Country: IT (occurrence: IT)
  Receive Date: 20140306
  Receipt Date: 20140530
  Transmission Date: 20141212
  Serious: Yes (Hospitalization)
  Sender: FDA-Public Use
  Company Number: PHHY2014IT021082

PATIENT
  Age: 57 Year
  Sex: Male

DRUGS (10)
  1. SOMATROPIN [Suspect]
     Indication: BLOOD GROWTH HORMONE DECREASED
     Dosage: 0.9 MG, QW
     Route: 058
     Dates: start: 20030301, end: 20140127
  2. TESTOSTERONE [Suspect]
     Indication: SECONDARY HYPOGONADISM
     Dosage: 250 MG, CYCLIC
     Route: 030
     Dates: start: 20030101, end: 20140127
  3. CORTONE ACETATO [Concomitant]
     Dosage: 25 MG, QD
     Route: 048
  4. CARDIRENE [Concomitant]
     Dosage: 75 MG, QD
  5. KEPPRA [Concomitant]
     Dosage: 2750 MG, QD
  6. EUTIROX [Concomitant]
     Dosage: 125 MG, QD
     Route: 048
  7. MINIRIN//DESMOPRESSIN [Concomitant]
     Dosage: 360 UG, QD
  8. DIBASE [Concomitant]
     Dosage: 300000 IU, UNK
     Route: 048
  9. CITALOPRAM [Concomitant]
     Dosage: 5 OT, UNK
  10. TRIATEC [Concomitant]

REACTIONS (1)
  - Prostate cancer [Unknown]
